FAERS Safety Report 21167601 (Version 2)
Quarter: 2022Q3

REPORT INFORMATION
  Report Type: Spontaneous
  Country: US (occurrence: US)
  Receive Date: 20220803
  Receipt Date: 20220810
  Transmission Date: 20221027
  Serious: Yes (Other)
  Sender: FDA-Public Use
  Company Number: US-ALXN-A202209065

PATIENT
  Age: 43 Year
  Sex: Female
  Weight: 49 kg

DRUGS (1)
  1. ULTOMIRIS [Suspect]
     Active Substance: RAVULIZUMAB-CWVZ
     Indication: Product used for unknown indication
     Dosage: UNK, EVERY 8 WEEKS
     Route: 065

REACTIONS (1)
  - End stage renal disease [Recovering/Resolving]
